FAERS Safety Report 14456462 (Version 10)
Quarter: 2021Q4

REPORT INFORMATION
  Report Type: Spontaneous
  Country: JP (occurrence: JP)
  Receive Date: 20180130
  Receipt Date: 20211111
  Transmission Date: 20220303
  Serious: Yes (Hospitalization, Disabling, Other)
  Sender: FDA-Public Use
  Company Number: JP-DSJP-DSJ-2018-102648

PATIENT
  Age: 81 Year
  Sex: Female

DRUGS (1)
  1. DENOSUMAB [Suspect]
     Active Substance: DENOSUMAB
     Indication: Osteoporosis
     Dosage: 60 MILLIGRAM, Q6MO
     Route: 058
     Dates: start: 20140625, end: 20161226

REACTIONS (2)
  - Osteonecrosis of external auditory canal [Recovered/Resolved with Sequelae]
  - Auditory meatus external erosion [Not Recovered/Not Resolved]

NARRATIVE: CASE EVENT DATE: 20150101
